FAERS Safety Report 9980599 (Version 1)
Quarter: 2014Q1

REPORT INFORMATION
  Report Type: Spontaneous
  Country: US (occurrence: None)
  Receive Date: 20140305
  Receipt Date: 20140305
  Transmission Date: 20141002
  Serious: Yes (Life-Threatening, Hospitalization)
  Sender: FDA-Public Use
  Company Number: None

PATIENT
  Age: 60 Year
  Sex: Male
  Weight: 91 kg

DRUGS (4)
  1. ANDROGEL [Suspect]
     Indication: HYPOGONADISM
  2. DULOXETINE [Concomitant]
  3. CLONAZEPAM [Concomitant]
  4. FISH OIL [Concomitant]

REACTIONS (1)
  - Myocardial infarction [None]
